FAERS Safety Report 7247254-4 (Version None)
Quarter: 2011Q1

REPORT INFORMATION
  Report Type: 
  Country: None (occurrence: None)
  Receive Date: 20110127
  Receipt Date: 20110121
  Transmission Date: 20110831
  Serious: Yes (Hospitalization)
  Sender: FDA-Public Use
  Company Number: A0761126A

PATIENT
  Age: 72 Year
  Sex: Male
  Weight: 79.1 kg

DRUGS (6)
  1. METFORMIN [Concomitant]
  2. TARKA [Concomitant]
  3. HYDROCHLOROTHIAZIDE [Concomitant]
  4. METOCLOPRAMIDE [Concomitant]
  5. AVANDIA [Suspect]
     Dosage: 8MG PER DAY
     Route: 048
     Dates: start: 20050105, end: 20070501
  6. NEXIUM [Concomitant]

REACTIONS (4)
  - CEREBRAL INFARCTION [None]
  - HEMIPARESIS [None]
  - HEMIPLEGIA [None]
  - CEREBROVASCULAR ACCIDENT [None]
